FAERS Safety Report 8866445 (Version 2)
Quarter: 2012Q4

REPORT INFORMATION
  Report Type: 
  Country: SE (occurrence: SE)
  Receive Date: 20121025
  Receipt Date: 20121214
  Transmission Date: 20130627
  Serious: Yes (Other)
  Sender: FDA-Public Use
  Company Number: PHHY2012SE093183

PATIENT
  Sex: Female

DRUGS (2)
  1. EXELON PATCH [Suspect]
     Dosage: 4.6 mg, per 24 hours
     Route: 062
     Dates: start: 201210
  2. QUETIAPINE [Concomitant]

REACTIONS (6)
  - Depressed level of consciousness [Not Recovered/Not Resolved]
  - Blood pressure decreased [Recovering/Resolving]
  - Abnormal behaviour [Recovering/Resolving]
  - Restlessness [Recovering/Resolving]
  - Confusional state [Recovering/Resolving]
  - Dizziness [Recovering/Resolving]
